FAERS Safety Report 6335300-1 (Version None)
Quarter: 2009Q3

REPORT INFORMATION
  Report Type: 
  Country: None (occurrence: None)
  Receive Date: 20090827
  Receipt Date: 20090819
  Transmission Date: 20100115
  Serious: Yes (Other)
  Sender: FDA-Public Use
  Company Number: 1000008261

PATIENT
  Age: 76 Year
  Sex: Male
  Weight: 68 kg

DRUGS (6)
  1. MEMANTINE HCL [Suspect]
     Indication: APATHY
     Dosage: 5 MG (5 MG, 1 IN 1 D), ORAL
     Route: 048
     Dates: start: 20090321, end: 20090329
  2. MEMANTINE HCL [Suspect]
     Indication: APATHY
     Dosage: 10 MG (10 MG, 1 IN 1 D), ORAL
     Route: 048
     Dates: start: 20090330, end: 20090401
  3. EXELON [Concomitant]
  4. PERMIXON [Concomitant]
  5. KENZEN [Concomitant]
  6. CORDARONE [Concomitant]

REACTIONS (6)
  - ABNORMAL BEHAVIOUR [None]
  - CONFUSIONAL STATE [None]
  - DISORIENTATION [None]
  - ENURESIS [None]
  - GAIT DISTURBANCE [None]
  - PSYCHOMOTOR RETARDATION [None]
